FAERS Safety Report 18658244 (Version 2)
Quarter: 2021Q1

REPORT INFORMATION
  Report Type: Report from Study
  Country: NL (occurrence: NL)
  Receive Date: 20201224
  Receipt Date: 20210205
  Transmission Date: 20210419
  Serious: Yes (Other)
  Sender: FDA-Public Use
  Company Number: NL-TEVA-2020-NL-1862428

PATIENT
  Age: 46 Year
  Sex: Female

DRUGS (19)
  1. KETAMINE [Suspect]
     Active Substance: KETAMINE
     Indication: IONTOPHORESIS
     Dosage: 1 X PER WEEK 30 MINUTES
     Route: 062
     Dates: start: 20201115, end: 20201117
  2. DEXAMETASONE [Concomitant]
     Active Substance: DEXAMETHASONE
     Dosage: ONCE 30 MINUTES
     Route: 062
     Dates: start: 20201110
  3. SUMATRIPTAN. [Concomitant]
     Active Substance: SUMATRIPTAN
     Indication: MIGRAINE
     Dosage: 10 MG, WHEN NEEDED
     Route: 048
  4. AJOVY [Suspect]
     Active Substance: FREMANEZUMAB-VFRM
     Indication: MIGRAINE
     Dosage: 225 MG
     Route: 058
     Dates: start: 20201027
  5. MOMETASON NASALSPRAY [Concomitant]
     Indication: NASAL CONGESTION
     Dosage: 50 MCG/DOSE
     Route: 045
  6. TOPIRAMATE. [Concomitant]
     Active Substance: TOPIRAMATE
     Indication: MIGRAINE
     Dosage: 25 MG+50 MG, 1 X PER DAY
     Route: 048
  7. LAMOTRIGINE 100 MG [Concomitant]
     Active Substance: LAMOTRIGINE
     Indication: EPILEPSY
     Route: 048
  8. AJOVY [Suspect]
     Active Substance: FREMANEZUMAB-VFRM
     Dosage: 675 MG ONCE PER 3 MONTH
     Route: 058
     Dates: start: 20201127
  9. DEPO?PROVERA [Concomitant]
     Active Substance: MEDROXYPROGESTERONE ACETATE
     Indication: CONTRACEPTION
     Dosage: 150 MG
     Route: 058
  10. CALCIUM/VITAMIN D [Concomitant]
     Active Substance: CALCIUM\VITAMIN D
     Indication: OSTEOPOROSIS
     Dosage: 1000 MILLIGRAM DAILY;
     Route: 048
  11. PANTOPRAZOLE SODIUM. [Concomitant]
     Active Substance: PANTOPRAZOLE SODIUM
     Indication: PROPHYLAXIS
     Route: 048
  12. RIZATRIPTAN. [Concomitant]
     Active Substance: RIZATRIPTAN
     Dosage: 10 MG, DISCONTINUED
     Route: 048
  13. TRIAMCINOLON CREME [Concomitant]
     Indication: ECZEMA
     Dosage: 1 MG/G
     Route: 003
  14. SIMVASTATINE [Concomitant]
     Active Substance: SIMVASTATIN
     Indication: BLOOD CHOLESTEROL
     Dosage: 40 MILLIGRAM DAILY;
     Route: 048
  15. POTASSIUM CITRATE. [Concomitant]
     Active Substance: POTASSIUM CITRATE
     Indication: NEPHROLITHIASIS
     Dosage: 1000 MILLIGRAM DAILY;
     Route: 048
  16. CANDESARTAN CILEX [Concomitant]
     Indication: BLOOD PRESSURE MEASUREMENT
     Dosage: 4 MILLIGRAM DAILY;
     Route: 048
  17. MAGNESIUM [Concomitant]
     Active Substance: MAGNESIUM
     Indication: MUSCLE SPASMS
  18. OXYCODON [Concomitant]
     Active Substance: OXYCODONE
     Dosage: 10 MG, WHEN NEEDED
  19. URSODEOXYCHOLIC ACID [Concomitant]
     Active Substance: URSODIOL
     Indication: BILIARY TRACT DISORDER
     Dosage: 300MG
     Route: 048

REACTIONS (2)
  - Swollen tongue [Recovered/Resolved]
  - Drug intolerance [Unknown]

NARRATIVE: CASE EVENT DATE: 20201130
